FAERS Safety Report 21199552 (Version 2)
Quarter: 2022Q3

REPORT INFORMATION
  Report Type: Report from Study
  Country: US (occurrence: US)
  Receive Date: 20220811
  Receipt Date: 20220912
  Transmission Date: 20221027
  Serious: Yes (Hospitalization, Other)
  Sender: FDA-Public Use
  Company Number: US-NOVARTISPH-NVSC2022US181331

PATIENT
  Age: 10 Year
  Sex: Female

DRUGS (3)
  1. VIJOICE [Suspect]
     Active Substance: ALPELISIB
     Indication: PIK3CA related overgrowth spectrum
     Dosage: 50 MG, QD
     Route: 048
     Dates: start: 2022
  2. VIJOICE [Suspect]
     Active Substance: ALPELISIB
     Dosage: 50 MG, Q2H
     Route: 048
     Dates: start: 20220614
  3. VIJOICE [Suspect]
     Active Substance: ALPELISIB
     Dosage: 50 MG, QD
     Route: 048

REACTIONS (2)
  - Cellulitis [Not Recovered/Not Resolved]
  - Limb discomfort [Unknown]

NARRATIVE: CASE EVENT DATE: 20220808
